FAERS Safety Report 24406136 (Version 2)
Quarter: 2025Q1

REPORT INFORMATION
  Report Type: Report from Study
  Country: DE (occurrence: DE)
  Receive Date: 20241007
  Receipt Date: 20250313
  Transmission Date: 20250409
  Serious: Yes (Life-Threatening, Hospitalization, Other)
  Sender: MERCK SHARP & DOHME LLC
  Company Number: DE-009507513-2407DEU010462

PATIENT
  Age: 39 Year
  Sex: Female

DRUGS (9)
  1. SOTATERCEPT [Suspect]
     Active Substance: SOTATERCEPT
     Dates: start: 20240529
  2. SOTATERCEPT [Suspect]
     Active Substance: SOTATERCEPT
     Dates: start: 20240619
  3. SOTATERCEPT [Suspect]
     Active Substance: SOTATERCEPT
     Dates: start: 20240710
  4. SOTATERCEPT [Suspect]
     Active Substance: SOTATERCEPT
     Dates: start: 20240821
  5. SOTATERCEPT [Suspect]
     Active Substance: SOTATERCEPT
  6. SOTATERCEPT [Suspect]
     Active Substance: SOTATERCEPT
     Indication: Pulmonary arterial hypertension
     Dosage: DOSE DESCRIPTION : FIRST DOSE: 0.3 MG/KG BODYWEIGHT?DAILY DOSE : 0.014 MILLIGRAM/KILOGRAM?REGIMEN...
     Dates: start: 20240508
  7. SOTATERCEPT [Suspect]
     Active Substance: SOTATERCEPT
  8. SOTATERCEPT [Suspect]
     Active Substance: SOTATERCEPT
  9. SOTATERCEPT [Suspect]
     Active Substance: SOTATERCEPT

REACTIONS (6)
  - Cardiac failure [Unknown]
  - Atrial flutter [Unknown]
  - Hyperthyroidism [Unknown]
  - Haemoptysis [Recovered/Resolved]
  - Haemoglobin increased [Not Recovered/Not Resolved]
  - Telangiectasia [Not Recovered/Not Resolved]

NARRATIVE: CASE EVENT DATE: 20240529
